FAERS Safety Report 19689013 (Version 1)
Quarter: 2021Q3

REPORT INFORMATION
  Report Type: Spontaneous
  Country: US (occurrence: US)
  Receive Date: 20210811
  Receipt Date: 20210811
  Transmission Date: 20211014
  Serious: No
  Sender: FDA-Public Use
  Company Number: US-SA-2021SA263754

PATIENT
  Age: 40 Year
  Sex: Male

DRUGS (18)
  1. VENLAFAXINE [Concomitant]
     Active Substance: VENLAFAXINE HYDROCHLORIDE
  2. DUPIXENT [Suspect]
     Active Substance: DUPILUMAB
     Indication: ASTHMA
  3. LATANOPROST. [Concomitant]
     Active Substance: LATANOPROST
  4. ADMELOG [Concomitant]
     Active Substance: INSULIN LISPRO
  5. FLUTICASONE. [Concomitant]
     Active Substance: FLUTICASONE
  6. FAMOTIDINE. [Concomitant]
     Active Substance: FAMOTIDINE
  7. CHLORHEXIDINE GLUCONATE. [Concomitant]
     Active Substance: CHLORHEXIDINE GLUCONATE
  8. CHLORHEX GLUC ALCO [Concomitant]
  9. AMOXICILLIN. [Concomitant]
     Active Substance: AMOXICILLIN
  10. HYDROCHLOROTHIAZIDE. [Concomitant]
     Active Substance: HYDROCHLOROTHIAZIDE
  11. VITAMIN D NOS [Concomitant]
     Active Substance: VITAMIN D NOS
  12. ATORVASTATIN [Concomitant]
     Active Substance: ATORVASTATIN
  13. LEVOCETIRIZIN [Concomitant]
     Active Substance: LEVOCETIRIZINE DIHYDROCHLORIDE
  14. OZEMPIC [Concomitant]
     Active Substance: SEMAGLUTIDE
  15. DUPIXENT [Suspect]
     Active Substance: DUPILUMAB
     Indication: DERMATITIS ATOPIC
     Dosage: 300 MG, QOW
     Route: 058
     Dates: start: 20201007
  16. BASAGLAR [Concomitant]
     Active Substance: INSULIN GLARGINE
  17. LOSARTAN POTASSIUM. [Concomitant]
     Active Substance: LOSARTAN POTASSIUM
  18. MONTELUKAST [Concomitant]
     Active Substance: MONTELUKAST SODIUM

REACTIONS (2)
  - Impaired quality of life [Unknown]
  - Dermatitis atopic [Unknown]
